FAERS Safety Report 4410546-8 (Version None)
Quarter: 2004Q3

REPORT INFORMATION
  Report Type: 
  Country: None (occurrence: None)
  Receive Date: 20040726
  Receipt Date: 20040716
  Transmission Date: 20050211
  Serious: Yes (Death)
  Sender: FDA-Public Use
  Company Number: 2002-07-1973

PATIENT
  Age: 28 Year
  Sex: Male

DRUGS (10)
  1. ALBUTEROL [Suspect]
     Indication: ASTHMA
     Dosage: INHALATION
     Route: 055
     Dates: start: 19980112
  2. AZMACORT INHALATION [Concomitant]
  3. SINGULAIR [Concomitant]
  4. BENZONATATE TABLETS [Concomitant]
  5. PREDNISONE [Concomitant]
  6. AEROBID INHALATION [Concomitant]
  7. ZITHROMAX [Concomitant]
  8. STEROIDS (NOS) [Concomitant]
  9. ILLEGAL ANABLOLIC STEROID [Concomitant]
  10. FLOVENT [Concomitant]

REACTIONS (18)
  - ALCOHOL USE [None]
  - ASTHMA [None]
  - ATELECTASIS [None]
  - BRONCHITIS [None]
  - BRONCHOSPASM [None]
  - CARDIOMEGALY [None]
  - DRUG ABUSER [None]
  - DRUG EFFECT DECREASED [None]
  - LARYNGEAL OEDEMA [None]
  - LOBAR PNEUMONIA [None]
  - MOUTH INJURY [None]
  - PAIN IN JAW [None]
  - PHARMACEUTICAL PRODUCT COMPLAINT [None]
  - PLEURAL EFFUSION [None]
  - SINUSITIS [None]
  - SKIN TEST POSITIVE [None]
  - SMOKER [None]
  - UPPER RESPIRATORY TRACT INFECTION [None]
